FAERS Safety Report 9107078 (Version 1)
Quarter: 2013Q1

REPORT INFORMATION
  Report Type: Spontaneous
  Country: ES (occurrence: ES)
  Receive Date: 20130221
  Receipt Date: 20130221
  Transmission Date: 20140127
  Serious: Yes (Other)
  Sender: FDA-Public Use
  Company Number: ES-WATSON-2012-19986

PATIENT
  Age: 60 Year
  Sex: Female

DRUGS (3)
  1. MORPHINE SULFATE (UNKNOWN) [Suspect]
     Indication: PAIN
     Dosage: .4 MG DAILY, PEAK DOSE 17 MG/DAY
     Route: 037
  2. BUPIVICAINE [Concomitant]
     Indication: PRODUCT USED FOR UNKNOWN INDICATION
     Dosage: UNK
     Route: 065
  3. CLONIDINE DCI [Concomitant]
     Indication: PRODUCT USED FOR UNKNOWN INDICATION
     Dosage: UNK
     Route: 065

REACTIONS (2)
  - Injection site granuloma [Recovered/Resolved]
  - Spinal cord compression [Recovered/Resolved]
